FAERS Safety Report 21748205 (Version 5)
Quarter: 2023Q2

REPORT INFORMATION
  Report Type: Spontaneous
  Country: US (occurrence: US)
  Receive Date: 20221219
  Receipt Date: 20230529
  Transmission Date: 20230721
  Serious: Yes (Death, Other)
  Sender: FDA-Public Use
  Company Number: US-PFIZER INC-PV202200126196

PATIENT
  Age: 85 Year
  Sex: Male

DRUGS (1)
  1. RETACRIT [Suspect]
     Active Substance: EPOETIN ALFA-EPBX
     Dosage: 10000 IU, WEEKLY

REACTIONS (9)
  - Death [Fatal]
  - Blood iron decreased [Unknown]
  - Illness [Unknown]
  - General physical health deterioration [Unknown]
  - Gait inability [Unknown]
  - Feeding disorder [Unknown]
  - Dysphagia [Unknown]
  - Urinary tract infection [Unknown]
  - Hypertension [Unknown]

NARRATIVE: CASE EVENT DATE: 20230102
